FAERS Safety Report 7545043-4 (Version None)
Quarter: 2011Q2

REPORT INFORMATION
  Report Type: 
  Country: None (occurrence: None)
  Receive Date: 20110614
  Receipt Date: 20100909
  Transmission Date: 20111010
  Serious: Yes (Hospitalization, Other)
  Sender: FDA-Public Use
  Company Number: US-BAYER-200943359NA

PATIENT
  Age: 39 Year
  Sex: Female
  Weight: 113.38 kg

DRUGS (14)
  1. LEVAQUIN [Concomitant]
     Dosage: 750 MG, UNK
  2. TERBINAFINE HCL [Concomitant]
     Dosage: 250 MG, UNK
  3. DROSPIRENONE AND ETHINYL ESTRADIOL [Suspect]
     Indication: CONTRACEPTION
     Dosage: UNK
     Dates: start: 20080801, end: 20091101
  4. LAMISIL [Concomitant]
     Dosage: 250 MG, UNK
  5. ASPIRIN [Concomitant]
  6. GLUCOPHAGE [Concomitant]
  7. UNKNOWN [Concomitant]
     Dosage: 750 MG, UNK
  8. VALTREX [Concomitant]
     Dosage: 1 G, UNK
  9. GLUCOVANCE [Concomitant]
  10. PROMETHAZINE W/ CODEINE [Concomitant]
  11. BETAMETHASONE DIPROPIONATE [Concomitant]
     Dosage: 0.05 %, UNK
     Route: 003
  12. YASMIN [Suspect]
     Indication: CONTRACEPTION
     Dosage: UNK
     Dates: start: 20050101, end: 20091101
  13. PSEUDOEPHEDRINE HCL [Concomitant]
     Dosage: 120 MG, UNK
  14. PRILOSEC [Concomitant]
     Dosage: 20 MG, UNK

REACTIONS (11)
  - CHOLECYSTITIS CHRONIC [None]
  - DYSPEPSIA [None]
  - GASTROOESOPHAGEAL REFLUX DISEASE [None]
  - CHOLELITHIASIS [None]
  - CHEST PAIN [None]
  - NAUSEA [None]
  - GALLBLADDER DISORDER [None]
  - BILIARY COLIC [None]
  - ABDOMINAL PAIN UPPER [None]
  - VOMITING [None]
  - PROCEDURAL PAIN [None]
